FAERS Safety Report 14258959 (Version 2)
Quarter: 2018Q1

REPORT INFORMATION
  Report Type: Spontaneous
  Country: US (occurrence: US)
  Receive Date: 20171207
  Receipt Date: 20180314
  Transmission Date: 20180508
  Serious: No
  Sender: FDA-Public Use
  Company Number: US-ALLERGAN-1766055US

PATIENT
  Age: 24 Year
  Sex: Female

DRUGS (3)
  1. VIBERZI [Suspect]
     Active Substance: ELUXADOLINE
     Dosage: 1 DF, SINGLE
     Route: 065
     Dates: start: 201710, end: 201710
  2. VIBERZI [Suspect]
     Active Substance: ELUXADOLINE
     Indication: PRODUCT USED FOR UNKNOWN INDICATION
     Dosage: 1 DF, SINGLE
     Route: 065
     Dates: start: 201710, end: 201710
  3. VIBERZI [Suspect]
     Active Substance: ELUXADOLINE
     Dosage: 1 DF, SINGLE
     Route: 065
     Dates: start: 201710, end: 201710

REACTIONS (6)
  - Wrong drug administered [Unknown]
  - Vomiting [Recovered/Resolved]
  - Abdominal pain [Recovered/Resolved]
  - Nausea [Recovered/Resolved]
  - Contraindicated drug prescribed [Unknown]
  - Loss of consciousness [Recovered/Resolved]

NARRATIVE: CASE EVENT DATE: 201710
